FAERS Safety Report 14528929 (Version 1)
Quarter: 2018Q1

REPORT INFORMATION
  Report Type: Spontaneous
  Country: US (occurrence: US)
  Receive Date: 20180214
  Receipt Date: 20180214
  Transmission Date: 20180509
  Serious: No
  Sender: FDA-Public Use
  Company Number: US-009507513-1801USA010270

PATIENT
  Sex: Female

DRUGS (1)
  1. ZOCOR [Suspect]
     Active Substance: SIMVASTATIN
     Dosage: ONE HALF OF 10 MG TABLET (5 MG), DAILY
     Route: 048

REACTIONS (3)
  - Abdominal pain upper [Unknown]
  - Wrong technique in product usage process [Unknown]
  - Product availability issue [Unknown]
